FAERS Safety Report 24961232 (Version 2)
Quarter: 2025Q1

REPORT INFORMATION
  Report Type: Report from Study
  Country: US (occurrence: US)
  Receive Date: 20250212
  Receipt Date: 20250327
  Transmission Date: 20250408
  Serious: Yes (Other)
  Sender: TAKEDA
  Company Number: US-TAKEDA-US201834846

PATIENT
  Age: 44 Year
  Sex: Male

DRUGS (6)
  1. ICATIBANT [Suspect]
     Active Substance: ICATIBANT ACETATE
     Indication: Hereditary angioedema
  2. ICATIBANT [Suspect]
     Active Substance: ICATIBANT ACETATE
  3. TAKHZYRO [Suspect]
     Active Substance: LANADELUMAB-FLYO
     Indication: Product used for unknown indication
     Dosage: UNK UNK, Q2WEEKS
     Dates: start: 20180906
  4. KALBITOR [Suspect]
     Active Substance: ECALLANTIDE
     Indication: Hereditary angioedema
  5. KALBITOR [Suspect]
     Active Substance: ECALLANTIDE
  6. KALBITOR [Suspect]
     Active Substance: ECALLANTIDE
     Dosage: 30 MILLIGRAM, 1/WEEK

REACTIONS (10)
  - Joint effusion [Unknown]
  - Fatigue [Recovered/Resolved]
  - Migraine [Unknown]
  - Dyspnoea [Unknown]
  - Vomiting [Unknown]
  - Hereditary angioedema [Unknown]
  - Chest pain [Unknown]
  - Skin burning sensation [Unknown]
  - Dizziness [Recovered/Resolved]
  - Injection site erythema [Recovered/Resolved]

NARRATIVE: CASE EVENT DATE: 20180906
